FAERS Safety Report 12575822 (Version 1)
Quarter: 2016Q3

REPORT INFORMATION
  Report Type: Spontaneous
  Country: BR (occurrence: BR)
  Receive Date: 20160720
  Receipt Date: 20160720
  Transmission Date: 20161109
  Serious: Yes (Other)
  Sender: FDA-Public Use
  Company Number: BR-PFIZER INC-2016346127

PATIENT
  Age: 79 Year
  Sex: Female
  Weight: 65 kg

DRUGS (5)
  1. BENERVA [Concomitant]
     Active Substance: THIAMINE
     Indication: HYPOVITAMINOSIS
     Dosage: 2 TABLETS, DAILY
     Route: 048
  2. VELIJA [Concomitant]
     Active Substance: DULOXETINE HYDROCHLORIDE
     Indication: SPINAL COLUMN INJURY
     Dosage: 1 TABLET OF STRENGTH 60 MG, DAILY
     Route: 048
  3. DOMPERIX [Concomitant]
     Indication: GASTROOESOPHAGEAL REFLUX DISEASE
     Dosage: 1 TABLET OF STRENTH 10 MG, DAILY
     Route: 048
  4. SOMALGIN CARDIO [Concomitant]
     Active Substance: ASPIRIN\DIHYDROXYALUMINUM AMINOACETATE ANHYDROUS\MAGNESIUM CARBONATE
     Indication: ANTICOAGULANT THERAPY
     Dosage: 1 TABLET OF STRENGTH 100 MG, DAILY
     Route: 048
  5. LYRICA [Suspect]
     Active Substance: PREGABALIN
     Indication: SPINAL COLUMN INJURY
     Dosage: 150 MG, UNK
     Route: 048
     Dates: start: 2014

REACTIONS (3)
  - Diabetes mellitus [Unknown]
  - Visual impairment [Unknown]
  - Hypoaesthesia [Unknown]

NARRATIVE: CASE EVENT DATE: 2015
